FAERS Safety Report 13398459 (Version 2)
Quarter: 2017Q2

REPORT INFORMATION
  Report Type: Spontaneous
  Country: US (occurrence: US)
  Receive Date: 20170403
  Receipt Date: 20170608
  Transmission Date: 20170830
  Serious: No
  Sender: FDA-Public Use
  Company Number: US-ACTELION-A-US2017-151812

PATIENT
  Age: 70 Year
  Sex: Female
  Weight: 49.89 kg

DRUGS (4)
  1. UPTRAVI [Suspect]
     Active Substance: SELEXIPAG
     Indication: PULMONARY HYPERTENSION
     Dosage: 800 MCG, QD
     Route: 048
     Dates: start: 20170321
  2. LETAIRIS [Concomitant]
     Active Substance: AMBRISENTAN
  3. UPTRAVI [Suspect]
     Active Substance: SELEXIPAG
     Dosage: 600 MCG, QD
     Route: 048
  4. REVATIO [Concomitant]
     Active Substance: SILDENAFIL CITRATE
     Dosage: UNK

REACTIONS (10)
  - Cough [Unknown]
  - Influenza like illness [Recovering/Resolving]
  - Unevaluable event [Unknown]
  - Scleroderma [Unknown]
  - Weight decreased [Unknown]
  - Headache [Recovering/Resolving]
  - Asthenia [Unknown]
  - Nervousness [Unknown]
  - Pain [Recovering/Resolving]
  - Decreased appetite [Unknown]

NARRATIVE: CASE EVENT DATE: 20170324
